FAERS Safety Report 5334929-7 (Version None)
Quarter: 2007Q1

REPORT INFORMATION
  Report Type: 
  Country: None (occurrence: None)
  Receive Date: 20070308
  Receipt Date: 20070108
  Transmission Date: 20070707
  Serious: No
  Sender: FDA-Public Use
  Company Number: 2007-BP-00343BP

PATIENT
  Age: 83 Year
  Sex: Male
  Weight: 54.43 kg

DRUGS (6)
  1. SPIRIVA [Suspect]
     Indication: LUNG INFECTION
     Dosage: 18 MCG (18 MCG,1 IN 1 D), IH
     Route: 055
     Dates: start: 20061101
  2. MYCOBUTIN [Concomitant]
  3. ETHAMBUTOL HYDROCHLORIDE [Concomitant]
  4. AZITHROMYCIN [Concomitant]
  5. MAGACE (MEGESTROL ACETATE) [Concomitant]
  6. BISOPROLOL/HCTZ (GALENIC /BISOPROLOL/HYDROCHLOROTHIAZIDE/) [Concomitant]

REACTIONS (4)
  - DRY MOUTH [None]
  - IRON DEFICIENCY ANAEMIA [None]
  - PRURITUS [None]
  - ULCER HAEMORRHAGE [None]
